FAERS Safety Report 21340883 (Version 1)
Quarter: 2022Q3

REPORT INFORMATION
  Report Type: Report from Study
  Country: US (occurrence: US)
  Receive Date: 20220916
  Receipt Date: 20220916
  Transmission Date: 20221027
  Serious: Yes (Other)
  Sender: FDA-Public Use
  Company Number: US-NOVARTISPH-NVSC2022US205411

PATIENT
  Sex: Male

DRUGS (1)
  1. ENTRESTO [Suspect]
     Active Substance: SACUBITRIL\VALSARTAN
     Indication: Product used for unknown indication
     Dosage: UNK
     Route: 048
     Dates: start: 202206

REACTIONS (6)
  - Pulmonary oedema [Recovering/Resolving]
  - Blood potassium [Unknown]
  - Swelling face [Recovering/Resolving]
  - Productive cough [Unknown]
  - Gout [Unknown]
  - Abdominal distension [Recovering/Resolving]
